FAERS Safety Report 5283488-6 (Version None)
Quarter: 2007Q1

REPORT INFORMATION
  Report Type: 
  Country: None (occurrence: None)
  Receive Date: 20061226
  Receipt Date: 20061001
  Transmission Date: 20070707
  Serious: No
  Sender: FDA-Public Use
  Company Number: 2006PV022226

PATIENT
  Age: 49 Year
  Sex: Male
  Weight: 99.7913 kg

DRUGS (2)
  1. SYMLIN [Suspect]
     Indication: DRUG USE FOR UNKNOWN INDICATION
     Dosage: 90 MCG;BID;SC
     Route: 058
     Dates: start: 20061001
  2. LANTUS [Concomitant]

REACTIONS (4)
  - FATIGUE [None]
  - HYPOAESTHESIA ORAL [None]
  - MEDICATION ERROR [None]
  - NAUSEA [None]
